FAERS Safety Report 7295927-X (Version None)
Quarter: 2011Q1

REPORT INFORMATION
  Report Type: 
  Country: None (occurrence: None)
  Receive Date: 20110216
  Receipt Date: 20110211
  Transmission Date: 20110831
  Serious: Yes (Death)
  Sender: FDA-Public Use
  Company Number: US-AMGEN AB-US337991

PATIENT
  Age: 68 Year
  Sex: Male

DRUGS (2)
  1. NPLATE [Suspect]
     Dates: start: 20081121, end: 20081213
  2. NPLATE [Suspect]
     Indication: IDIOPATHIC THROMBOCYTOPENIC PURPURA
     Dosage: UNK UNK, UNK
     Dates: start: 20081121, end: 20081212

REACTIONS (3)
  - DISEASE PROGRESSION [None]
  - RESPIRATORY FAILURE [None]
  - HAEMORRHAGE INTRACRANIAL [None]
